FAERS Safety Report 8115966-6 (Version None)
Quarter: 2012Q1

REPORT INFORMATION
  Report Type: 
  Country: None (occurrence: None)
  Receive Date: 20120206
  Receipt Date: 20120130
  Transmission Date: 20120608
  Serious: Yes (Hospitalization)
  Sender: FDA-Public Use
  Company Number: GB-B.I. PHARMACEUTICALS,INC./RIDGEFIELD-2012-UK-00070UK

PATIENT
  Sex: Male
  Weight: 70 kg

DRUGS (4)
  1. PERINDOPRIL ERBUMINE [Concomitant]
     Indication: EJECTION FRACTION DECREASED
  2. BISOPROLOL FUMARATE [Concomitant]
     Indication: ANGINA UNSTABLE
     Dosage: 1.25 MG
     Route: 048
     Dates: start: 20110201
  3. PRADAXA [Suspect]
     Indication: ATRIAL FIBRILLATION
     Dosage: 220 MG
     Route: 048
     Dates: start: 20111109
  4. PERINDOPRIL ERBUMINE [Concomitant]
     Indication: HYPERTENSION
     Dosage: 4 ANZ
     Route: 048
     Dates: start: 20110701

REACTIONS (4)
  - FEELING ABNORMAL [None]
  - INSOMNIA [None]
  - HYPONATRAEMIA [None]
  - MALAISE [None]
